FAERS Safety Report 22977342 (Version 4)
Quarter: 2023Q4

REPORT INFORMATION
  Report Type: Report from Study
  Country: US (occurrence: US)
  Receive Date: 20230925
  Receipt Date: 20231030
  Transmission Date: 20240110
  Serious: Yes (Other)
  Sender: FDA-Public Use
  Company Number: US-UCBSA-2023046476

PATIENT
  Age: 75 Year
  Sex: Female
  Weight: 65.76 kg

DRUGS (2)
  1. ROZANOLIXIZUMAB [Suspect]
     Active Substance: ROZANOLIXIZUMAB
     Indication: Myasthenia gravis
     Dosage: 560 MILLIGRAM PER MILLILITRE, UNK
     Route: 058
     Dates: start: 20230914
  2. ROZANOLIXIZUMAB [Suspect]
     Active Substance: ROZANOLIXIZUMAB
     Dosage: 560 MILLIGRAM (4 ML), WEEKLY FOR 6 WEEKS
     Route: 058
     Dates: start: 2023

REACTIONS (12)
  - Blood urine present [Unknown]
  - Renal pain [Not Recovered/Not Resolved]
  - Back pain [Unknown]
  - Oedema peripheral [Unknown]
  - Fluid retention [Unknown]
  - Discomfort [Unknown]
  - Fungal infection [Not Recovered/Not Resolved]
  - Laboratory test abnormal [Not Recovered/Not Resolved]
  - Dysphagia [Not Recovered/Not Resolved]
  - Gait disturbance [Not Recovered/Not Resolved]
  - Scar [Not Recovered/Not Resolved]
  - Therapeutic product effect incomplete [Unknown]

NARRATIVE: CASE EVENT DATE: 20230914
